FAERS Safety Report 18232891 (Version 3)
Quarter: 2020Q4

REPORT INFORMATION
  Report Type: Spontaneous
  Country: US (occurrence: US)
  Receive Date: 20200904
  Receipt Date: 20201130
  Transmission Date: 20210113
  Serious: Yes (Other)
  Sender: FDA-Public Use
  Company Number: US-PFIZER INC-2020337993

PATIENT
  Age: 64 Year
  Sex: Female

DRUGS (1)
  1. XELJANZ XR [Suspect]
     Active Substance: TOFACITINIB CITRATE
     Dosage: 11 MG, DAILY; (TAKE 1 TABLET DAILY)

REACTIONS (9)
  - Speech sound disorder [Unknown]
  - Movement disorder [Unknown]
  - Motor dysfunction [Unknown]
  - Goitre [Unknown]
  - Post procedural complication [Unknown]
  - Pulmonary embolism [Unknown]
  - Thyroid disorder [Unknown]
  - Gastrooesophageal reflux disease [Unknown]
  - Illness [Unknown]
